FAERS Safety Report 5449519-5 (Version None)
Quarter: 2007Q3

REPORT INFORMATION
  Report Type: 
  Country: None (occurrence: None)
  Receive Date: 20070907
  Receipt Date: 20070823
  Transmission Date: 20080115
  Serious: Yes (Hospitalization)
  Sender: FDA-Public Use
  Company Number: SPV1-2007-03949

PATIENT
  Sex: Female

DRUGS (1)
  1. LIALDA [Suspect]
     Indication: COLITIS ULCERATIVE

REACTIONS (1)
  - GALLBLADDER DISORDER [None]
